FAERS Safety Report 4959653-1 (Version None)
Quarter: 2006Q1

REPORT INFORMATION
  Report Type: 
  Country: None (occurrence: None)
  Receive Date: 20060328
  Receipt Date: 20060314
  Transmission Date: 20060701
  Serious: Yes (Hospitalization)
  Sender: FDA-Public Use
  Company Number: 2006RR-01792

PATIENT
  Age: 79 Year
  Sex: Female

DRUGS (5)
  1. SIMVASTATIN [Suspect]
     Indication: HYPERLIPIDAEMIA
     Dosage: 20 MG; 40 MG
  2. SIMVASTATIN [Suspect]
     Indication: HYPERLIPIDAEMIA
     Dosage: 20 MG; 40 MG
  3. NEFAZODONE HYDROCHLORIDE [Suspect]
     Indication: DEPRESSION
     Dosage: 150 MG X 2
  4. WARFARIN SODIUM [Concomitant]
  5. ZOLPIDEM HEMITARTRATE (ZOLPIDEM HEMITARTRATE) [Concomitant]

REACTIONS (6)
  - ALANINE AMINOTRANSFERASE INCREASED [None]
  - ASPARTATE AMINOTRANSFERASE INCREASED [None]
  - BLOOD ALKALINE PHOSPHATASE INCREASED [None]
  - DRUG INTERACTION [None]
  - DRUG LEVEL INCREASED [None]
  - RHABDOMYOLYSIS [None]
